FAERS Safety Report 6834251-3 (Version None)
Quarter: 2010Q3

REPORT INFORMATION
  Report Type: 
  Country: None (occurrence: None)
  Receive Date: 20100712
  Receipt Date: 20080828
  Transmission Date: 20110219
  Serious: No
  Sender: FDA-Public Use
  Company Number: US-PFIZER INC-2007025219

PATIENT
  Sex: Female
  Weight: 123.83 kg

DRUGS (5)
  1. CHANTIX [Suspect]
     Indication: SMOKING CESSATION THERAPY
     Route: 048
     Dates: start: 20070314, end: 20070321
  2. LOTREL [Concomitant]
     Indication: HYPERTENSION
  3. DICLOFENAC SODIUM [Concomitant]
     Indication: ARTHRITIS
  4. LEVOTHYROXINE [Concomitant]
  5. ALPRAZOLAM [Concomitant]
     Indication: NERVOUS SYSTEM DISORDER

REACTIONS (1)
  - DYSGEUSIA [None]
